FAERS Safety Report 8363716-0 (Version None)
Quarter: 2012Q2

REPORT INFORMATION
  Report Type: 
  Country: None (occurrence: None)
  Receive Date: 20120516
  Receipt Date: 20120510
  Transmission Date: 20120825
  Serious: Yes (Other)
  Sender: FDA-Public Use
  Company Number: BR-PFIZER INC-2012114084

PATIENT
  Age: 23 Year
  Sex: Female

DRUGS (4)
  1. NORETHISTERONE [Concomitant]
     Dosage: UNK
  2. SECNIDAZOLE [Concomitant]
     Dosage: 1000 MG, UNK
  3. DEPO-PROVERA [Suspect]
     Indication: CONTRACEPTION
     Dosage: 150 MG, EVERY 3 MONTHS
     Route: 030
     Dates: start: 20110101
  4. TINIDAZOLE/TIOCONAZOLE [Concomitant]
     Dosage: UNK

REACTIONS (5)
  - HAEMORRHAGE IN PREGNANCY [None]
  - UNINTENDED PREGNANCY [None]
  - ABDOMINAL DISCOMFORT [None]
  - DRUG INEFFECTIVE [None]
  - ABDOMINAL PAIN [None]
